FAERS Safety Report 7717157-7 (Version None)
Quarter: 2011Q3

REPORT INFORMATION
  Report Type: 
  Country: None (occurrence: None)
  Receive Date: 20110826
  Receipt Date: 20110826
  Transmission Date: 20111222
  Serious: Yes (Life-Threatening, Hospitalization, Other)
  Sender: FDA-Public Use
  Company Number: None

PATIENT
  Age: 55 Year
  Sex: Male

DRUGS (10)
  1. MAALOX [Concomitant]
  2. RAD001 EVEROLIMUS [Suspect]
     Indication: COLORECTAL CANCER
     Dosage: 5 MG PO DAILY
     Dates: start: 20110302, end: 20110816
  3. LISINOPRIL [Concomitant]
  4. ASPIRIN [Concomitant]
  5. LOVENOX [Concomitant]
  6. AV-951 [Suspect]
     Indication: COLORECTAL CANCER
     Dosage: 1 MG PO DAILY
     Route: 048
     Dates: start: 20110302, end: 20110810
  7. CLINDAMYCIN [Concomitant]
  8. DECADRON [Concomitant]
  9. INDOCIN [Concomitant]
  10. ROXICET ORAL [Concomitant]

REACTIONS (4)
  - SPINAL COMPRESSION FRACTURE [None]
  - SPINAL CORD COMPRESSION [None]
  - SPINAL OSTEOARTHRITIS [None]
  - METASTASES TO SPINE [None]
